FAERS Safety Report 15946811 (Version 3)
Quarter: 2022Q1

REPORT INFORMATION
  Report Type: Spontaneous
  Country: US (occurrence: US)
  Receive Date: 20190211
  Receipt Date: 20220311
  Transmission Date: 20220424
  Serious: No
  Sender: FDA-Public Use
  Company Number: US-PFIZER INC-2019049646

PATIENT
  Age: 55 Year
  Sex: Female

DRUGS (6)
  1. GENOTROPIN [Suspect]
     Active Substance: SOMATROPIN
     Dosage: 1 MG, 1X/DAY
     Route: 048
     Dates: start: 2003
  2. GENOTROPIN [Suspect]
     Active Substance: SOMATROPIN
     Dosage: 1.2MG/DAY, 7DAYS/WK
  3. ESTROGENS [Concomitant]
     Active Substance: ESTROGENS
     Dosage: UNK
     Dates: start: 1985
  4. HYDROCORTISONE [Concomitant]
     Active Substance: HYDROCORTISONE
     Dosage: UNK
     Dates: start: 1971
  5. SYNTHROID [Concomitant]
     Active Substance: LEVOTHYROXINE SODIUM
     Dosage: UNK
     Dates: start: 1971
  6. TESTOSTERONE [Concomitant]
     Active Substance: TESTOSTERONE
     Dosage: UNK [LOW DOSE]

REACTIONS (4)
  - Device use issue [Recovered/Resolved]
  - Insulin-like growth factor increased [Recovered/Resolved]
  - Poor quality device used [Unknown]
  - Device information output issue [Unknown]
